FAERS Safety Report 6590297-4 (Version None)
Quarter: 2010Q1

REPORT INFORMATION
  Report Type: 
  Country: None (occurrence: None)
  Receive Date: 20100219
  Receipt Date: 20091026
  Transmission Date: 20100710
  Serious: Yes (Life-Threatening, Hospitalization)
  Sender: FDA-Public Use
  Company Number: GB-ASTRAZENECA-2009SE21249

PATIENT
  Age: 45 Year
  Sex: Female
  Weight: 76.2 kg

DRUGS (7)
  1. SEROQUEL [Suspect]
     Indication: AGGRESSION
     Route: 048
     Dates: start: 20090701
  2. SEROQUEL [Suspect]
     Route: 048
  3. SEROQUEL [Suspect]
     Route: 048
     Dates: end: 20091001
  4. EPILIM [Concomitant]
     Indication: EPILEPSY
     Route: 048
  5. EPILIM [Concomitant]
     Indication: CONVULSION
     Route: 048
  6. CARBEMEZAPINE [Concomitant]
     Indication: EPILEPSY
  7. CITALOPRAM HYDROBROMIDE [Concomitant]
     Indication: ANXIETY
     Route: 048
     Dates: start: 20070101

REACTIONS (2)
  - COMA [None]
  - HYPERGLYCAEMIA [None]
